FAERS Safety Report 20133486 (Version 3)
Quarter: 2022Q2

REPORT INFORMATION
  Report Type: Other
  Country: JP (occurrence: JP)
  Receive Date: 20211201
  Receipt Date: 20220503
  Transmission Date: 20220720
  Serious: Yes (Hospitalization)
  Sender: FDA-Public Use
  Company Number: JP-CHUGAI-2021028695AA

PATIENT
  Age: 15 Year
  Sex: Male

DRUGS (2)
  1. RISDIPLAM [Suspect]
     Active Substance: RISDIPLAM
     Indication: Spinal muscular atrophy
     Route: 045
     Dates: start: 20210928, end: 20211113
  2. RISDIPLAM [Suspect]
     Active Substance: RISDIPLAM
     Route: 045
     Dates: start: 20211117

REACTIONS (3)
  - Somnolence [Unknown]
  - Pneumonia aspiration [Recovering/Resolving]
  - Nasopharyngitis [Recovering/Resolving]

NARRATIVE: CASE EVENT DATE: 20211112
